FAERS Safety Report 7341951-8 (Version None)
Quarter: 2011Q1

REPORT INFORMATION
  Report Type: 
  Country: None (occurrence: None)
  Receive Date: 20110309
  Receipt Date: 20110303
  Transmission Date: 20110831
  Serious: Yes (Other)
  Sender: FDA-Public Use
  Company Number: JP-PFIZER INC-2010111582

PATIENT
  Age: 46 Year
  Sex: Male

DRUGS (2)
  1. CANDESARTAN CILEXETIL [Suspect]
  2. NORVASC [Suspect]
     Dosage: UNK

REACTIONS (3)
  - MALAISE [None]
  - RENAL FAILURE ACUTE [None]
  - OVERDOSE [None]
